FAERS Safety Report 25080312 (Version 1)
Quarter: 2025Q1

REPORT INFORMATION
  Report Type: Report from Study
  Country: CA (occurrence: CA)
  Receive Date: 20250315
  Receipt Date: 20250315
  Transmission Date: 20250409
  Serious: Yes (Other)
  Sender: ABBVIE
  Company Number: CA-ABBVIE-6167918

PATIENT
  Age: 56 Year
  Sex: Female

DRUGS (2)
  1. RINVOQ [Suspect]
     Active Substance: UPADACITINIB
     Indication: Crohn^s disease
     Dosage: 15 MG
     Route: 048
  2. REMICADE [Suspect]
     Active Substance: INFLIXIMAB
     Indication: Product used for unknown indication
     Route: 065

REACTIONS (7)
  - Stoma closure [Unknown]
  - Stoma creation [Unknown]
  - Rash papular [Unknown]
  - Urticaria [Unknown]
  - Swelling [Recovered/Resolved]
  - Abdominal distension [Unknown]
  - Swelling [Unknown]

NARRATIVE: CASE EVENT DATE: 20240101
